FAERS Safety Report 23645153 (Version 2)
Quarter: 2024Q2

REPORT INFORMATION
  Report Type: Spontaneous
  Country: US (occurrence: US)
  Receive Date: 20240318
  Receipt Date: 20240429
  Transmission Date: 20240716
  Serious: No
  Sender: FDA-Public Use
  Company Number: US-BEH-2024169783

PATIENT
  Age: 59 Year
  Sex: Female

DRUGS (28)
  1. HIZENTRA [Suspect]
     Active Substance: HUMAN IMMUNOGLOBULIN G
     Indication: Immunodeficiency common variable
     Dosage: 10 GRAM, QW
     Route: 058
     Dates: start: 20240306
  2. HIZENTRA [Suspect]
     Active Substance: HUMAN IMMUNOGLOBULIN G
     Dosage: 10 GRAM, QW
     Route: 058
     Dates: start: 20240301
  3. AIMOVIG [Concomitant]
     Active Substance: ERENUMAB-AOOE
  4. ALBUTEROL SULFATE [Concomitant]
     Active Substance: ALBUTEROL SULFATE
  5. ALLEGRA ALLERGY [Concomitant]
     Active Substance: FEXOFENADINE HYDROCHLORIDE
  6. ARTIFICIAL TEAR [HYPROMELLOSE] [Concomitant]
  7. BACLOFEN [Concomitant]
     Active Substance: BACLOFEN
  8. CYMBALTA [Concomitant]
     Active Substance: DULOXETINE HYDROCHLORIDE
  9. CYTOMEL [Concomitant]
     Active Substance: LIOTHYRONINE SODIUM
  10. FLONASE ALLERGY RELIEF [Concomitant]
     Active Substance: FLUTICASONE PROPIONATE
  11. IPRATROPIUM [Concomitant]
     Active Substance: IPRATROPIUM
  12. IRON [Concomitant]
     Active Substance: IRON
  13. KETOCONAZOLE [Concomitant]
     Active Substance: KETOCONAZOLE
  14. KLONOPIN [Concomitant]
     Active Substance: CLONAZEPAM
  15. LYRICA [Concomitant]
     Active Substance: PREGABALIN
  16. METFORMIN HYDROCHLORIDE [Concomitant]
     Active Substance: METFORMIN HYDROCHLORIDE
  17. MIRAPEX [Concomitant]
     Active Substance: PRAMIPEXOLE DIHYDROCHLORIDE
  18. MOTRIN IB [Concomitant]
     Active Substance: IBUPROFEN
  19. PROMETHAZINE [Concomitant]
     Active Substance: PROMETHAZINE HYDROCHLORIDE
  20. OMEPRAZOLE [Concomitant]
     Active Substance: OMEPRAZOLE
  21. SEROQUEL [Concomitant]
     Active Substance: QUETIAPINE FUMARATE
  22. SINGULAIR [Concomitant]
     Active Substance: MONTELUKAST SODIUM
  23. TOPAMAX [Concomitant]
     Active Substance: TOPIRAMATE
  24. TRELEGY ELLIPTA [Concomitant]
     Active Substance: FLUTICASONE FUROATE\UMECLIDINIUM BROMIDE\VILANTEROL TRIFENATATE
  25. UBRELVY [Concomitant]
     Active Substance: UBROGEPANT
  26. VENTOLIN HFA [Concomitant]
     Active Substance: ALBUTEROL SULFATE
  27. WELLBUTRIN SR [Concomitant]
     Active Substance: BUPROPION HYDROCHLORIDE
  28. ZOCOR [Concomitant]
     Active Substance: SIMVASTATIN

REACTIONS (5)
  - Hypersensitivity [Recovered/Resolved]
  - Migraine [Recovered/Resolved]
  - Nausea [Recovered/Resolved]
  - Urticaria [Recovered/Resolved]
  - Urticaria [Recovered/Resolved]

NARRATIVE: CASE EVENT DATE: 20240306
